FAERS Safety Report 15549011 (Version 2)
Quarter: 2018Q4

REPORT INFORMATION
  Report Type: Spontaneous
  Country: AU (occurrence: AU)
  Receive Date: 20181025
  Receipt Date: 20181030
  Transmission Date: 20190205
  Serious: Yes (Other)
  Sender: FDA-Public Use
  Company Number: AU-AMGEN-AUSSP2018146777

PATIENT
  Age: 80 Year
  Sex: Female

DRUGS (5)
  1. PROLIA [Suspect]
     Active Substance: DENOSUMAB
     Indication: RIB FRACTURE
     Dosage: UNK, Q6MO
     Route: 065
     Dates: start: 201804
  2. VITAMIN D [Concomitant]
     Active Substance: CHOLECALCIFEROL
     Dosage: UNK
  3. CALCIUM [Concomitant]
     Active Substance: CALCIUM
     Dosage: UNK
  4. TRITACE [Concomitant]
     Active Substance: RAMIPRIL
     Indication: HYPERTENSION
     Dosage: UNK
  5. VYTORIN [Concomitant]
     Active Substance: EZETIMIBE\SIMVASTATIN
     Indication: BLOOD CHOLESTEROL ABNORMAL
     Dosage: UNK

REACTIONS (8)
  - Knee arthroplasty [Unknown]
  - Off label use [Unknown]
  - Limb discomfort [Unknown]
  - Feeling of body temperature change [Unknown]
  - Nipple pain [Unknown]
  - Pain in extremity [Unknown]
  - Arthralgia [Unknown]
  - Insomnia [Unknown]

NARRATIVE: CASE EVENT DATE: 2018
